FAERS Safety Report 7495287-5 (Version None)
Quarter: 2011Q2

REPORT INFORMATION
  Report Type: 
  Country: None (occurrence: None)
  Receive Date: 20110523
  Receipt Date: 20110517
  Transmission Date: 20111010
  Serious: Yes (Hospitalization)
  Sender: FDA-Public Use
  Company Number: DE-BRISTOL-MYERS SQUIBB COMPANY-15754757

PATIENT
  Sex: Male
  Weight: 3 kg

DRUGS (2)
  1. BARACLUDE [Suspect]
  2. OMEPRAZOLE [Concomitant]

REACTIONS (1)
  - JAUNDICE NEONATAL [None]
